FAERS Safety Report 24983982 (Version 1)
Quarter: 2025Q1

REPORT INFORMATION
  Report Type: Spontaneous
  Country: US (occurrence: US)
  Receive Date: 20250219
  Receipt Date: 20250219
  Transmission Date: 20250409
  Serious: No
  Sender: OTSUKA
  Company Number: US-OTSUKA-2024_029803

PATIENT
  Age: 23 Day
  Sex: Male

DRUGS (6)
  1. BUSULFAN [Suspect]
     Active Substance: BUSULFAN
     Indication: Bone marrow conditioning regimen
     Route: 065
  2. BUSULFAN [Suspect]
     Active Substance: BUSULFAN
     Indication: Stem cell transplant
  3. BUSULFAN [Suspect]
     Active Substance: BUSULFAN
     Indication: Combined immunodeficiency
  4. SIROLIMUS [Suspect]
     Active Substance: SIROLIMUS
     Indication: Bone marrow conditioning regimen
     Route: 065
  5. SIROLIMUS [Suspect]
     Active Substance: SIROLIMUS
     Indication: Stem cell transplant
  6. SIROLIMUS [Suspect]
     Active Substance: SIROLIMUS
     Indication: Combined immunodeficiency

REACTIONS (4)
  - Mucosal inflammation [Unknown]
  - Rash erythematous [Unknown]
  - Rash [Unknown]
  - Product use in unapproved indication [Unknown]
